FAERS Safety Report 24790667 (Version 1)
Quarter: 2024Q4

REPORT INFORMATION
  Report Type: Spontaneous
  Country: GB (occurrence: GB)
  Receive Date: 20241230
  Receipt Date: 20241230
  Transmission Date: 20250114
  Serious: Yes (Other)
  Sender: ELI LILLY AND COMPANY
  Company Number: None

PATIENT
  Age: 34 Year
  Sex: Female
  Weight: 70 kg

DRUGS (1)
  1. TIRZEPATIDE [Suspect]
     Active Substance: TIRZEPATIDE
     Indication: Weight control
     Dosage: 15 MG, OTHER (ONCE A WEEK)
     Route: 065
     Dates: start: 20240701

REACTIONS (11)
  - Maternal exposure during breast feeding [Unknown]
  - Lower respiratory tract infection [Recovering/Resolving]
  - Eye infection [Recovering/Resolving]
  - Urinary tract infection [Recovering/Resolving]
  - Candida infection [Recovering/Resolving]
  - Dry mouth [Not Recovered/Not Resolved]
  - Dry eye [Unknown]
  - Menstruation irregular [Not Recovered/Not Resolved]
  - Illness [Recovering/Resolving]
  - Immune system disorder [Unknown]
  - Alopecia [Not Recovered/Not Resolved]
